FAERS Safety Report 6611779-2 (Version None)
Quarter: 2010Q1

REPORT INFORMATION
  Report Type: 
  Country: None (occurrence: None)
  Receive Date: 20100303
  Receipt Date: 20100224
  Transmission Date: 20100710
  Serious: Yes (Other)
  Sender: FDA-Public Use
  Company Number: CA-JNJFOC-20100300325

PATIENT
  Sex: Female
  Weight: 74 kg

DRUGS (9)
  1. REMICADE [Suspect]
     Indication: RHEUMATOID ARTHRITIS
     Dosage: 11TH INFUSION
     Route: 042
  2. REMICADE [Suspect]
     Route: 042
  3. SYNTHROID [Concomitant]
     Route: 048
  4. AVALIDE [Concomitant]
     Route: 048
  5. PREMARIN [Concomitant]
     Route: 048
  6. PREDNISONE [Concomitant]
     Route: 048
  7. BABY ASPIRIN [Concomitant]
     Route: 048
  8. FENTANYL-100 [Concomitant]
  9. ADALAT [Concomitant]
     Route: 048

REACTIONS (1)
  - DIVERTICULITIS [None]
